FAERS Safety Report 9214656 (Version 2)
Quarter: 2013Q4

REPORT INFORMATION
  Report Type: Spontaneous
  Country: US (occurrence: US)
  Receive Date: 20130405
  Receipt Date: 20131021
  Transmission Date: 20140711
  Serious: Yes (Other)
  Sender: FDA-Public Use
  Company Number: US-BAYER-2013-040714

PATIENT
  Age: 52 Year
  Sex: Female
  Weight: 74.83 kg

DRUGS (7)
  1. YASMIN [Suspect]
     Dosage: UNK
     Dates: start: 20051130, end: 20130120
  2. LISINOPRIL [Concomitant]
     Indication: HYPERTENSION
     Dosage: UNK
     Dates: start: 20070905
  3. SYNTHROID [Concomitant]
     Indication: HYPOTHYROIDISM
     Dosage: UNK
     Dates: start: 20070725
  4. TOBRAMYCIN [Concomitant]
     Dosage: UNK
  5. CLARITHROMYCIN [Concomitant]
  6. OMEPRAZOL [Concomitant]
     Indication: GASTROOESOPHAGEAL REFLUX DISEASE
     Dosage: UNK
     Dates: start: 20090521
  7. ALLEGRA-D [Concomitant]

REACTIONS (18)
  - Gallbladder disorder [None]
  - Cholecystitis chronic [None]
  - Back pain [None]
  - Injury [None]
  - Emotional distress [None]
  - Anxiety [None]
  - Psychological trauma [None]
  - Muscle spasms [None]
  - Hypertension [None]
  - Abnormal weight gain [None]
  - Thyroid disorder [None]
  - Arrhythmia [None]
  - Ventricular extrasystoles [None]
  - Supraventricular tachycardia [None]
  - Gastrooesophageal reflux disease [None]
  - Memory impairment [None]
  - Depression [None]
  - Pain in extremity [None]
